FAERS Safety Report 15829493 (Version 1)
Quarter: 2019Q1

REPORT INFORMATION
  Report Type: Spontaneous
  Country: US (occurrence: US)
  Receive Date: 20190115
  Receipt Date: 20190115
  Transmission Date: 20190417
  Serious: No
  Sender: FDA-Public Use
  Company Number: US-PERRIGO-17US030390

PATIENT
  Age: 57 Year
  Sex: Female
  Weight: 53.52 kg

DRUGS (4)
  1. TRETINOIN. [Suspect]
     Active Substance: TRETINOIN
     Dosage: SMALL AMOUNT, SINGLE
     Route: 061
     Dates: start: 201710, end: 201710
  2. ANTIDEPRESSANTS [Concomitant]
     Active Substance: UNSPECIFIED INGREDIENT
     Indication: DEPRESSION
     Dosage: UNK
     Route: 065
  3. TRETINOIN. [Suspect]
     Active Substance: TRETINOIN
     Dosage: SMALL AMOUNT, SINGLE
     Route: 061
     Dates: start: 20171031, end: 20171031
  4. TRETINOIN. [Suspect]
     Active Substance: TRETINOIN
     Indication: SKIN PAPILLOMA
     Dosage: SMALL AMOUNT, SINGLE
     Route: 061
     Dates: start: 201710, end: 201710

REACTIONS (2)
  - Condition aggravated [Not Recovered/Not Resolved]
  - Off label use [Recovered/Resolved]

NARRATIVE: CASE EVENT DATE: 201710
